FAERS Safety Report 9735521 (Version 1)
Quarter: 2013Q4

REPORT INFORMATION
  Report Type: Spontaneous
  Country: US (occurrence: US)
  Receive Date: 20131206
  Receipt Date: 20131206
  Transmission Date: 20140711
  Serious: No
  Sender: FDA-Public Use
  Company Number: US-GILEAD-2009-0023477

PATIENT
  Sex: Male
  Weight: 102.6 kg

DRUGS (13)
  1. LETAIRIS [Suspect]
     Indication: PULMONARY ARTERIAL HYPERTENSION
     Route: 048
     Dates: start: 20090715
  2. DIGOXIN [Concomitant]
  3. BUMETANIDE [Concomitant]
  4. COLCHICINE [Concomitant]
  5. VIAGRA [Concomitant]
  6. HUMALOG [Concomitant]
  7. METFORMIN [Concomitant]
  8. ZOCOR [Concomitant]
  9. DIOVAN [Concomitant]
  10. NORVASC [Concomitant]
  11. BETAPACE [Concomitant]
  12. ASPIRIN [Concomitant]
  13. POTASSIUM CHLORIDE [Concomitant]

REACTIONS (2)
  - Hypotension [Unknown]
  - Dyspnoea [Unknown]
